FAERS Safety Report 6243863-X (Version None)
Quarter: 2009Q2

REPORT INFORMATION
  Report Type: 
  Country: None (occurrence: None)
  Receive Date: 20090623
  Receipt Date: 20090618
  Transmission Date: 20091009
  Serious: Yes (Other)
  Sender: FDA-Public Use
  Company Number: SPV1-2009-01266

PATIENT
  Age: 69 Year
  Sex: Female

DRUGS (1)
  1. FOSRENOL [Suspect]
     Indication: HYPERPHOSPHATAEMIA
     Dosage: 1000 MG, 1 TABLET EACH MEAL, ORAL
     Route: 048
     Dates: start: 20080101

REACTIONS (1)
  - PROCEDURAL HYPOTENSION [None]
